FAERS Safety Report 4573669-9 (Version None)
Quarter: 2005Q1

REPORT INFORMATION
  Report Type: 
  Country: None (occurrence: None)
  Receive Date: 20050208
  Receipt Date: 20040928
  Transmission Date: 20050727
  Serious: No
  Sender: FDA-Public Use
  Company Number: US-GLAXOSMITHKLINE-A0527595A

PATIENT
  Age: 35 Year
  Sex: Female

DRUGS (5)
  1. PAXIL [Suspect]
     Indication: DEPRESSION
     Dosage: 12.5MG PER DAY
     Route: 048
     Dates: start: 20040915
  2. NEXIUM [Concomitant]
  3. NABUMETONE [Concomitant]
  4. NIFEDIPINE [Concomitant]
  5. CYCLOBENZAPRIN [Concomitant]

REACTIONS (3)
  - NAUSEA [None]
  - PAIN [None]
  - YAWNING [None]
